FAERS Safety Report 14253776 (Version 8)
Quarter: 2019Q4

REPORT INFORMATION
  Report Type: Not Available
  Country: DE (occurrence: DE)
  Receive Date: 20171205
  Receipt Date: 20191213
  Transmission Date: 20200122
  Serious: Yes (Other)
  Sender: FDA-Public Use
  Company Number: DE-SYNTHON BV-NL01PV17_45462

PATIENT
  Age: 61 Year
  Sex: Male

DRUGS (3)
  1. TAMSULOSIN [Suspect]
     Active Substance: TAMSULOSIN
     Indication: PRODUCT USED FOR UNKNOWN INDICATION
     Dosage: UNK
  2. ELIQUIS [Suspect]
     Active Substance: APIXABAN
     Indication: CEREBROVASCULAR ACCIDENT PROPHYLAXIS
     Dosage: 5 MG, BID
  3. CANDESARTAN. [Concomitant]
     Active Substance: CANDESARTAN
     Indication: PRODUCT USED FOR UNKNOWN INDICATION
     Dosage: 4 MG, UNK

REACTIONS (12)
  - Pain [Unknown]
  - Product dose omission [Unknown]
  - Memory impairment [Unknown]
  - Dry skin [Unknown]
  - Pulpitis dental [Unknown]
  - Haemorrhage urinary tract [Unknown]
  - Skin disorder [Unknown]
  - Blood urine present [Unknown]
  - Coagulation time prolonged [Unknown]
  - Pruritus [Unknown]
  - Gastric disorder [Unknown]
  - Skin laceration [Unknown]
